FAERS Safety Report 9161964 (Version 1)
Quarter: 2013Q1

REPORT INFORMATION
  Report Type: Spontaneous
  Country: CA (occurrence: None)
  Receive Date: 20130225
  Receipt Date: 20130225
  Transmission Date: 20140127
  Serious: Yes (Hospitalization)
  Sender: FDA-Public Use
  Company Number: 2013-000433

PATIENT
  Age: 93 Year
  Sex: Female

DRUGS (27)
  1. ACTONEL [Suspect]
     Indication: OSTEOPOROSIS
     Dosage: 35 MG ONCE WEEKLY, ORAL
     Route: 048
     Dates: start: 1998, end: 201301
  2. ASPIRIN (ACETYLSALICYCLIC ACID) [Concomitant]
  3. RAMIPRIL (RAMIPRIL) [Concomitant]
  4. METOPROLOL (METOPROLOL) [Concomitant]
  5. FUROSEMIDE (FUROSEMIDE) [Concomitant]
  6. LIPITOR (ATORVASTATIN CALCIUM) [Concomitant]
  7. PANTOLOC?/01263204/ (PANTOPRAZOLE SODIUM SESQUIHYDRATE) [Concomitant]
  8. SENOKOT?/00142201/ (SENNA ALEXANDRINA) [Concomitant]
  9. COLACE (DOCUSATE SODIUM) [Concomitant]
  10. PAXIL (PAROXETINE HYDROCHLORIDE) [Concomitant]
  11. GABAPENTIN (GABAPENTIN) [Concomitant]
  12. TAMOXIFEN [Suspect]
  13. LEVOTHYROXINE (LEVOTHYROXINE) [Concomitant]
  14. HYDROMORPHONE (HYDROMORPHONE) [Concomitant]
  15. HYDROMORPHONE (HYDROMORPHONE) [Concomitant]
  16. APAP (PARACETAMOL) [Concomitant]
  17. VITAMIN B12?/00056201/ (CYANOCOBALAMIN) [Concomitant]
  18. LACTULOSE (LACTULOSE) [Concomitant]
  19. FLOVENT (FLUTICASONE PROPIONATE) [Concomitant]
  20. ATROVENT (IPRATROPIUM BROMIDE) [Concomitant]
  21. VENTOLIN?/00139501/ (SALBUTAMOL) [Concomitant]
  22. MAALOX?/00082501/ (ALUMINIUM HYDROXIDE, MAGNESIUM HYDROXIDE) [Concomitant]
  23. LACTAID (TILACTASE) [Concomitant]
  24. CALCIUM (CALCIUM) [Concomitant]
  25. MULTIVIT (VITAMINS NOS) [Concomitant]
  26. VITAMIN C?/00008001/ (ASCORBIC ACID) [Concomitant]
  27. COD LIVER OIL (COD-LIVER OIL) [Concomitant]

REACTIONS (7)
  - Pneumonia [None]
  - Influenza [None]
  - Cardiac failure congestive [None]
  - Pain in extremity [None]
  - Sciatica [None]
  - Condition aggravated [None]
  - Osteopenia [None]
